FAERS Safety Report 5492662-5 (Version None)
Quarter: 2007Q4

REPORT INFORMATION
  Report Type: 
  Country: None (occurrence: None)
  Receive Date: 20071022
  Receipt Date: 20071012
  Transmission Date: 20080405
  Serious: Yes (Hospitalization)
  Sender: FDA-Public Use
  Company Number: US-GILEAD-2007-0013812

PATIENT
  Age: 80 Year
  Sex: Male

DRUGS (2)
  1. LETAIRIS [Suspect]
  2. COUMADIN [Concomitant]

REACTIONS (3)
  - HAEMATURIA [None]
  - HAEMORRHAGE URINARY TRACT [None]
  - OEDEMA [None]
